FAERS Safety Report 8606794-3 (Version None)
Quarter: 2012Q3

REPORT INFORMATION
  Report Type: 
  Country: None (occurrence: None)
  Receive Date: 20120820
  Receipt Date: 20120808
  Transmission Date: 20120928
  Serious: Yes (Other)
  Sender: FDA-Public Use
  Company Number: FR-FRI-1000037869

PATIENT
  Sex: Male

DRUGS (4)
  1. ESCITALOPRAM [Suspect]
     Indication: DEPRESSION
     Dosage: 1 DF
     Route: 048
     Dates: start: 20120401
  2. PREZISTA [Suspect]
     Indication: HIV INFECTION CDC CATEGORY A1
     Dosage: 300 MG
     Route: 048
     Dates: start: 20120412, end: 20120423
  3. TRUVADA [Suspect]
     Indication: HIV INFECTION CDC CATEGORY A1
     Dosage: 200 MG/245 MG
     Route: 048
     Dates: start: 20120412, end: 20120509
  4. NORVIR [Concomitant]
     Indication: HIV INFECTION CDC CATEGORY A1
     Dosage: 1 DF
     Route: 048
     Dates: start: 20120412

REACTIONS (2)
  - RASH [None]
  - PRURITUS [None]
